FAERS Safety Report 6871140-2 (Version None)
Quarter: 2010Q3

REPORT INFORMATION
  Report Type: 
  Country: None (occurrence: None)
  Receive Date: 20100723
  Receipt Date: 20100712
  Transmission Date: 20110219
  Serious: Yes (Death, Hospitalization)
  Sender: FDA-Public Use
  Company Number: MA-ROCHE-584819

PATIENT
  Sex: Female
  Weight: 70 kg

DRUGS (2)
  1. BEVACIZUMAB [Suspect]
     Route: 042
     Dates: start: 20080404, end: 20080704
  2. BEVACIZUMAB [Suspect]
     Route: 042
     Dates: end: 20080818

REACTIONS (5)
  - DISSEMINATED INTRAVASCULAR COAGULATION [None]
  - FISTULA [None]
  - HEPATIC FUNCTION ABNORMAL [None]
  - PLATELET COUNT DECREASED [None]
  - TRANSAMINASES INCREASED [None]
